FAERS Safety Report 16492635 (Version 1)
Quarter: 2019Q2

REPORT INFORMATION
  Report Type: Spontaneous
  Country: US (occurrence: US)
  Receive Date: 20190628
  Receipt Date: 20190628
  Transmission Date: 20190711
  Serious: Yes (Death, Life-Threatening, Other)
  Sender: FDA-Public Use
  Company Number: US-AUROBINDO-AUR-APL-2019-035942

PATIENT

DRUGS (4)
  1. LITHIUM. [Interacting]
     Active Substance: LITHIUM
     Indication: DEPRESSION
  2. FLUOXETINE [Suspect]
     Active Substance: FLUOXETINE HYDROCHLORIDE
     Indication: DEPRESSION
     Dosage: UNK
     Route: 065
  3. FLUOXETINE [Interacting]
     Active Substance: FLUOXETINE HYDROCHLORIDE
     Indication: ANXIETY
  4. LITHIUM. [Interacting]
     Active Substance: LITHIUM
     Indication: ANXIETY
     Dosage: UNK
     Route: 065

REACTIONS (7)
  - Illiteracy [Unknown]
  - Serotonin syndrome [Fatal]
  - Tachypnoea [Fatal]
  - Respiration abnormal [Fatal]
  - Ataxia [Fatal]
  - Cardio-respiratory arrest [Fatal]
  - Drug interaction [Fatal]
